FAERS Safety Report 7523030-X (Version None)
Quarter: 2011Q2

REPORT INFORMATION
  Report Type: 
  Country: None (occurrence: None)
  Receive Date: 20110603
  Receipt Date: 20110524
  Transmission Date: 20111010
  Serious: Yes (Other)
  Sender: FDA-Public Use
  Company Number: US-BAYER-2011-026605

PATIENT
  Age: 50 Year
  Sex: Female
  Weight: 90.249 kg

DRUGS (5)
  1. TOPAMAX [Concomitant]
  2. NOCOR [Concomitant]
  3. AVELOX [Suspect]
     Indication: NASOPHARYNGITIS
     Dosage: 400 MG, QD
     Route: 048
     Dates: start: 20110321, end: 20110322
  4. METOPROLOL TARTRATE [Concomitant]
  5. LEXAPRO [Concomitant]

REACTIONS (5)
  - TREMOR [None]
  - DYSPNOEA [None]
  - PALPITATIONS [None]
  - ANXIETY [None]
  - RESTLESS LEGS SYNDROME [None]
